FAERS Safety Report 19860521 (Version 1)
Quarter: 2021Q3

REPORT INFORMATION
  Report Type: Spontaneous
  Country: US (occurrence: US)
  Receive Date: 20210921
  Receipt Date: 20210921
  Transmission Date: 20211014
  Serious: No
  Sender: FDA-Public Use
  Company Number: US-CELLTRION INC.-2021US000242

PATIENT

DRUGS (2)
  1. INFLECTRA [Suspect]
     Active Substance: INFLIXIMAB-DYYB
     Indication: PSORIATIC ARTHROPATHY
     Dosage: 8 MG/KG, EVERY 6 WEEKS
     Route: 065
     Dates: start: 202010
  2. INFLECTRA [Suspect]
     Active Substance: INFLIXIMAB-DYYB
     Indication: RHEUMATOID ARTHRITIS
     Dosage: 100MG EVERY 6 WEEKS BY INFUSION
     Route: 042

REACTIONS (10)
  - Pain in extremity [Unknown]
  - Product distribution issue [Unknown]
  - Off label use [Unknown]
  - Overdose [Unknown]
  - Intentional dose omission [Unknown]
  - Underdose [Unknown]
  - Finger deformity [Unknown]
  - Arthralgia [Unknown]
  - Product dose omission issue [Unknown]
  - Pain [Unknown]
